FAERS Safety Report 14620512 (Version 2)
Quarter: 2018Q3

REPORT INFORMATION
  Report Type: Spontaneous
  Country: ES (occurrence: ES)
  Receive Date: 20180309
  Receipt Date: 20180712
  Transmission Date: 20181010
  Serious: Yes (Other)
  Sender: FDA-Public Use
  Company Number: ES-UCBSA-2018010524

PATIENT
  Age: 35 Year
  Sex: Female

DRUGS (3)
  1. LUMINAL [Suspect]
     Active Substance: PHENOBARBITAL SODIUM
     Indication: JUVENILE MYOCLONIC EPILEPSY
     Dosage: 75 MG, ONCE DAILY (QD)
     Route: 048
  2. KEPPRA [Suspect]
     Active Substance: LEVETIRACETAM
     Indication: JUVENILE MYOCLONIC EPILEPSY
     Dosage: 3000 MG, ONCE DAILY (QD)
     Route: 048
  3. DEPAKINE CRONO [Suspect]
     Active Substance: VALPROIC ACID
     Indication: JUVENILE MYOCLONIC EPILEPSY
     Dosage: 1000 MG, ONCE DAILY (QD)
     Route: 048

REACTIONS (2)
  - Abortion induced [Unknown]
  - Pregnancy [Unknown]

NARRATIVE: CASE EVENT DATE: 201706
